FAERS Safety Report 9019991 (Version 1)
Quarter: 2013Q1

REPORT INFORMATION
  Report Type: Spontaneous
  Country: US (occurrence: US)
  Receive Date: 20130119
  Receipt Date: 20130119
  Transmission Date: 20140127
  Serious: No
  Sender: FDA-Public Use
  Company Number: US-ALLERGAN-1211734US

PATIENT
  Sex: Female

DRUGS (6)
  1. BOTOX COSMETIC [Suspect]
     Indication: SKIN WRINKLING
     Dosage: 45 UNITS, SINGLE
     Route: 030
     Dates: start: 20120810, end: 20120810
  2. BOTOX COSMETIC [Suspect]
     Indication: SKIN WRINKLING
  3. BOTOX COSMETIC [Suspect]
     Indication: SKIN WRINKLING
  4. XANAX [Concomitant]
     Indication: ANXIETY
     Dosage: UNK
  5. WELLBUTRIN [Concomitant]
     Indication: ANXIETY
     Dosage: UNK
  6. PAXIL [Concomitant]
     Indication: ANXIETY
     Dosage: UNK

REACTIONS (4)
  - Speech disorder [Unknown]
  - Sensation of foreign body [Unknown]
  - Facial paresis [Unknown]
  - VIIth nerve paralysis [Unknown]
